FAERS Safety Report 17872397 (Version 1)
Quarter: 2020Q2

REPORT INFORMATION
  Report Type: Spontaneous
  Country: AU (occurrence: AU)
  Receive Date: 20200608
  Receipt Date: 20200608
  Transmission Date: 20200714
  Serious: Yes (Other)
  Sender: FDA-Public Use
  Company Number: AU-009507513-2006AUS002382

PATIENT
  Age: 64 Year
  Sex: Male

DRUGS (1)
  1. BCG LIVE [Suspect]
     Active Substance: BACILLUS CALMETTE-GUERIN SUBSTRAIN TICE LIVE ANTIGEN
     Indication: BLADDER TRANSITIONAL CELL CARCINOMA

REACTIONS (3)
  - Infective aneurysm [Unknown]
  - Disseminated Bacillus Calmette-Guerin infection [Unknown]
  - Intervertebral discitis [Unknown]
